FAERS Safety Report 6582601-8 (Version None)
Quarter: 2010Q1

REPORT INFORMATION
  Report Type: 
  Country: None (occurrence: None)
  Receive Date: 20100216
  Receipt Date: 20100208
  Transmission Date: 20100710
  Serious: Yes (Hospitalization)
  Sender: FDA-Public Use
  Company Number: DE-WYE-G05523410

PATIENT
  Sex: Female
  Weight: 55 kg

DRUGS (3)
  1. TREVILOR RETARD [Suspect]
     Dosage: REGULAR DOSAGE UNKNOWN, MAX. 15 CAPSULES ON 06-FEB-2010 (MAX. OVERDOSE AMOUNT 1125 MG)
     Route: 048
  2. ETHANOL [Suspect]
     Dosage: UNKNOWN OVERDOSE AMOUNT
     Route: 048
     Dates: start: 20100206, end: 20100206
  3. ARCOXIA [Suspect]
     Dosage: REGULAR DOSAGE UNKNOWN, UNKNOWN DOSE ON 06-FEB-2010
     Route: 048

REACTIONS (4)
  - CRYING [None]
  - DRUG ABUSE [None]
  - FEELING DRUNK [None]
  - INTENTIONAL OVERDOSE [None]
